FAERS Safety Report 22203294 (Version 1)
Quarter: 2023Q2

REPORT INFORMATION
  Report Type: Spontaneous
  Country: US (occurrence: US)
  Receive Date: 20230412
  Receipt Date: 20230412
  Transmission Date: 20230722
  Serious: Yes (Other)
  Sender: FDA-Public Use
  Company Number: US-ABBVIE-4723945

PATIENT
  Age: 71 Year
  Sex: Female

DRUGS (2)
  1. HUMIRA [Suspect]
     Active Substance: ADALIMUMAB
     Indication: Rheumatoid arthritis
     Route: 058
  2. ASPIRIN [Concomitant]
     Active Substance: ASPIRIN
     Indication: Cerebrovascular accident

REACTIONS (4)
  - Cerebrovascular accident [Unknown]
  - Wrong technique in product usage process [Not Recovered/Not Resolved]
  - Injection site bruising [Unknown]
  - Injection site reaction [Unknown]

NARRATIVE: CASE EVENT DATE: 20230401
